FAERS Safety Report 11517885 (Version 1)
Quarter: 2015Q3

REPORT INFORMATION
  Report Type: Spontaneous
  Country: US (occurrence: US)
  Receive Date: 20150917
  Receipt Date: 20150917
  Transmission Date: 20151125
  Serious: No
  Sender: FDA-Public Use
  Company Number: US-RB-077092-15

PATIENT

DRUGS (2)
  1. MUCINEX [Suspect]
     Active Substance: GUAIFENESIN
     Dosage: 600MG. TIME OF LAST USE: 10:00 AM.,BID
     Route: 065
     Dates: end: 20150419
  2. MUCINEX [Suspect]
     Active Substance: GUAIFENESIN
     Indication: RESPIRATORY TRACT CONGESTION
     Dosage: 1200MG. LAST TOOK ??-APR-2015.,BID
     Route: 065
     Dates: start: 20150411

REACTIONS (2)
  - Paraesthesia [Recovered/Resolved with Sequelae]
  - Anosmia [Recovered/Resolved with Sequelae]

NARRATIVE: CASE EVENT DATE: 20150413
